FAERS Safety Report 8713329 (Version 2)
Quarter: 2012Q4

REPORT INFORMATION
  Report Type: 
  Country: LV (occurrence: LV)
  Receive Date: 20120808
  Receipt Date: 20121003
  Transmission Date: 20130627
  Serious: Yes (Other)
  Sender: FDA-Public Use
  Company Number: LV-ROCHE-1098829

PATIENT
  Age: 68 Year
  Sex: Female

DRUGS (4)
  1. BONVIVA [Suspect]
     Indication: OSTEOPOROSIS
     Dosage: Therapy withdrawn
     Route: 048
     Dates: start: 20120615, end: 20120615
  2. CALCIGRAN FORTE [Concomitant]
     Indication: OSTEOPOROSIS
     Dosage: Reported as 1x2
     Route: 048
     Dates: start: 20120615
  3. VIGANTOL [Concomitant]
     Indication: OSTEOPOROSIS
     Dosage: Reported as 2 drops x 2
     Route: 048
     Dates: start: 20120615
  4. MYDOCALM [Concomitant]
     Route: 048
     Dates: start: 201205

REACTIONS (1)
  - Visual acuity reduced [Not Recovered/Not Resolved]
